FAERS Safety Report 8360439-9 (Version None)
Quarter: 2012Q2

REPORT INFORMATION
  Report Type: 
  Country: None (occurrence: None)
  Receive Date: 20120515
  Receipt Date: 20120502
  Transmission Date: 20120825
  Serious: Yes (Hospitalization, Other)
  Sender: FDA-Public Use
  Company Number: FR-PFIZER INC-2012112083

PATIENT
  Age: 77 Year
  Sex: Female

DRUGS (22)
  1. EUPRESSYL [Concomitant]
     Dosage: UNK
     Dates: start: 20120317
  2. ACETAMINOPHEN [Concomitant]
     Dosage: UNK
     Dates: start: 20120201, end: 20120309
  3. KAYEXALATE [Concomitant]
     Dosage: UNK
     Dates: start: 20120201, end: 20120305
  4. ATARAX [Concomitant]
     Dosage: UNK
     Dates: start: 20120201, end: 20120309
  5. ATORVASTATIN [Concomitant]
     Dosage: UNK
     Dates: start: 20120317
  6. PROCORALAN [Concomitant]
     Dosage: UNK
     Dates: start: 20120201, end: 20120309
  7. ATORVASTATIN [Concomitant]
     Dosage: UNK
     Dates: start: 20120201, end: 20120309
  8. XANAX [Concomitant]
     Dosage: UNK
     Dates: start: 20120201, end: 20120309
  9. RAMIPRIL [Suspect]
     Dosage: UNK
     Route: 048
     Dates: start: 20120306, end: 20120309
  10. LASIX [Concomitant]
     Dosage: UNK
     Dates: start: 20120201, end: 20120309
  11. ACETAMINOPHEN [Concomitant]
     Dosage: UNK
     Dates: start: 20120317
  12. ASPIRIN [Concomitant]
     Dosage: UNK
     Dates: start: 20120201
  13. NITRODERM [Concomitant]
     Dosage: UNK
     Route: 062
     Dates: start: 20120201, end: 20120309
  14. ALLOPURINOL [Suspect]
     Dosage: UNK
     Route: 048
     Dates: start: 20120226, end: 20120309
  15. NEXIUM [Concomitant]
     Dosage: UNK
     Dates: start: 20120201, end: 20120222
  16. EUPRESSYL [Concomitant]
     Dosage: UNK
     Dates: start: 20120201, end: 20120309
  17. AMLODIPINE BESYLATE [Concomitant]
     Dosage: UNK
     Dates: start: 20120201
  18. PANTOPRAZOLE SODIUM [Suspect]
     Indication: PRODUCT USED FOR UNKNOWN INDICATION
     Dosage: UNK
     Route: 048
     Dates: start: 20120222, end: 20120309
  19. HYPERIUM [Suspect]
     Dosage: UNK
     Route: 048
     Dates: start: 20120216, end: 20120309
  20. PLAVIX [Suspect]
     Indication: PRODUCT USED FOR UNKNOWN INDICATION
     Dosage: UNK
     Route: 048
     Dates: start: 20120212, end: 20120309
  21. PROCORALAN [Concomitant]
     Dosage: UNK
     Dates: start: 20120317
  22. BISOPROLOL [Concomitant]
     Dosage: UNK
     Dates: start: 20120201, end: 20120309

REACTIONS (3)
  - AGRANULOCYTOSIS [None]
  - THROMBOCYTOPENIA [None]
  - LEUKOPENIA [None]
